FAERS Safety Report 24890698 (Version 1)
Quarter: 2025Q1

REPORT INFORMATION
  Report Type: Spontaneous
  Country: PL (occurrence: PL)
  Receive Date: 20250127
  Receipt Date: 20250127
  Transmission Date: 20250408
  Serious: Yes (Hospitalization)
  Sender: JAZZ
  Company Number: PL-JAZZ PHARMACEUTICALS-2025-PL-001951

PATIENT

DRUGS (4)
  1. CANNABIDIOL [Suspect]
     Active Substance: CANNABIDIOL
     Indication: Lennox-Gastaut syndrome
     Dosage: 3.5 MILLIGRAM, BID
     Route: 048
     Dates: start: 20240930, end: 20250103
  2. CLOBAZAM [Concomitant]
     Active Substance: CLOBAZAM
     Indication: Product used for unknown indication
  3. LAMOTRIGINE [Concomitant]
     Active Substance: LAMOTRIGINE
     Indication: Product used for unknown indication
  4. CENOBAMATE [Concomitant]
     Active Substance: CENOBAMATE
     Indication: Product used for unknown indication

REACTIONS (3)
  - Influenza [Unknown]
  - Alanine aminotransferase increased [Recovered/Resolved]
  - Aspartate aminotransferase increased [Recovered/Resolved]

NARRATIVE: CASE EVENT DATE: 20241201
